FAERS Safety Report 8541981-4 (Version None)
Quarter: 2012Q3

REPORT INFORMATION
  Report Type: 
  Country: None (occurrence: None)
  Receive Date: 20120726
  Receipt Date: 20111025
  Transmission Date: 20120928
  Serious: No
  Sender: FDA-Public Use
  Company Number: US-ASTRAZENECA-2011SE57886

PATIENT
  Age: 78 Year
  Sex: Female

DRUGS (3)
  1. SEROQUEL [Suspect]
     Indication: NERVOUSNESS
     Route: 048
     Dates: start: 20090101
  2. SEROQUEL [Suspect]
     Indication: AGITATION
     Route: 048
     Dates: start: 20090101
  3. SEROQUEL [Suspect]
     Indication: ANXIETY
     Route: 048
     Dates: start: 20090101

REACTIONS (5)
  - HEARING IMPAIRED [None]
  - POOR QUALITY SLEEP [None]
  - APHAGIA [None]
  - OFF LABEL USE [None]
  - DRUG DOSE OMISSION [None]
